FAERS Safety Report 5319647-3 (Version None)
Quarter: 2007Q2

REPORT INFORMATION
  Report Type: 
  Country: None (occurrence: None)
  Receive Date: 20070501
  Receipt Date: 20070424
  Transmission Date: 20071010
  Serious: Yes (Hospitalization)
  Sender: FDA-Public Use
  Company Number: 163-21880-07021297

PATIENT
  Age: 75 Year
  Sex: Male
  Weight: 102.0593 kg

DRUGS (4)
  1. REVLIMID [Suspect]
     Indication: MYELODYSPLASTIC SYNDROME
     Dosage: 10 MG, 1 IN 1 D, ORAL
     Route: 048
     Dates: start: 20061212, end: 20070331
  2. ARANESP [Concomitant]
  3. VIDAZA [Concomitant]
  4. INSULIN (INSULIN) [Concomitant]

REACTIONS (8)
  - ANAEMIA [None]
  - ASTHMA [None]
  - BLOOD GLUCOSE INCREASED [None]
  - BLOOD LACTATE DEHYDROGENASE INCREASED [None]
  - PLATELET COUNT DECREASED [None]
  - RASH MACULO-PAPULAR [None]
  - RESPIRATORY DISTRESS [None]
  - WHITE BLOOD CELL COUNT DECREASED [None]
